FAERS Safety Report 5855881-1 (Version None)
Quarter: 2008Q3

REPORT INFORMATION
  Report Type: 
  Country: None (occurrence: None)
  Receive Date: 20080821
  Receipt Date: 20080811
  Transmission Date: 20090109
  Serious: Yes (Death, Life-Threatening, Disabling)
  Sender: FDA-Public Use
  Company Number: 2008AL006706

PATIENT
  Age: 98 Year
  Sex: Female
  Weight: 63.5036 kg

DRUGS (10)
  1. DIGOXIN [Suspect]
     Indication: ATRIAL FIBRILLATION
     Dosage: 0.25MG, DAILY PO
     Route: 048
     Dates: start: 20080401
  2. CARDIZEM [Concomitant]
  3. FUROSEMIDE [Concomitant]
  4. SYNTHROID [Concomitant]
  5. TYLENOL (CAPLET) [Concomitant]
  6. HYDROCHLOROTHIAZIDE [Concomitant]
  7. FEXOFENADINE [Concomitant]
  8. POTASSIUM CHLORIDE [Concomitant]
  9. METOLAZONE [Concomitant]
  10. NEXIUM [Concomitant]

REACTIONS (15)
  - ANOREXIA [None]
  - ASTHENIA [None]
  - CARDIOACTIVE DRUG LEVEL ABOVE THERAPEUTIC [None]
  - CONSTIPATION [None]
  - DYSPHAGIA [None]
  - EYE DISORDER [None]
  - FEELING ABNORMAL [None]
  - FLUID RETENTION [None]
  - HYPOPHAGIA [None]
  - NAUSEA [None]
  - OEDEMA PERIPHERAL [None]
  - SLUGGISHNESS [None]
  - THERAPEUTIC AGENT TOXICITY [None]
  - TREMOR [None]
  - WEIGHT DECREASED [None]
